FAERS Safety Report 7339941-4 (Version None)
Quarter: 2011Q1

REPORT INFORMATION
  Report Type: 
  Country: None (occurrence: None)
  Receive Date: 20110228
  Receipt Date: 20110210
  Transmission Date: 20110831
  Serious: Yes (Death, Hospitalization)
  Sender: FDA-Public Use
  Company Number: AUR-APL-2011-00491

PATIENT
  Age: 18 Year
  Sex: Male

DRUGS (2)
  1. LAMOTRIGINE [Suspect]
     Indication: EPILEPSY
  2. VALPROATE SODIUM [Suspect]
     Indication: EPILEPSY

REACTIONS (33)
  - LYMPHADENITIS [None]
  - INFECTIOUS MONONUCLEOSIS [None]
  - CONJUNCTIVAL HYPERAEMIA [None]
  - FATIGUE [None]
  - HYPOTENSION [None]
  - RESPIRATORY TRACT HAEMORRHAGE [None]
  - NO THERAPEUTIC RESPONSE [None]
  - GENERAL PHYSICAL HEALTH DETERIORATION [None]
  - RENAL FAILURE [None]
  - SCARLET FEVER [None]
  - STEVENS-JOHNSON SYNDROME [None]
  - PNEUMONITIS [None]
  - HEPATOSPLENOMEGALY [None]
  - ACUTE RESPIRATORY DISTRESS SYNDROME [None]
  - ENANTHEMA [None]
  - BONE MARROW FAILURE [None]
  - LOCALISED OEDEMA [None]
  - DYSPHAGIA [None]
  - DRUG HYPERSENSITIVITY [None]
  - MULTI-ORGAN FAILURE [None]
  - HAEMODIALYSIS [None]
  - BRADYCARDIA [None]
  - MYELODYSPLASTIC SYNDROME [None]
  - TONSILLITIS [None]
  - EYE OEDEMA [None]
  - FACE OEDEMA [None]
  - OXYGEN SATURATION DECREASED [None]
  - KAWASAKI'S DISEASE [None]
  - ANAEMIA [None]
  - SEPTIC SHOCK [None]
  - CARDIAC FAILURE [None]
  - COAGULOPATHY [None]
  - HEPATIC FAILURE [None]
